FAERS Safety Report 4803954-4 (Version None)
Quarter: 2005Q3

REPORT INFORMATION
  Report Type: 
  Country: None (occurrence: None)
  Receive Date: 20050920
  Receipt Date: 20050614
  Transmission Date: 20060218
  Serious: No
  Sender: FDA-Public Use
  Company Number: US-YAMANOUCHI-YPA20050328

PATIENT
  Age: 74 Year
  Sex: Female
  Weight: 88.4514 kg

DRUGS (13)
  1. VESICARE [Suspect]
     Indication: BLADDER DISORDER
     Dosage: 5 MG QD PO
     Route: 048
     Dates: start: 20050610
  2. CARDENE [Concomitant]
  3. AMBIEN [Concomitant]
  4. XANAX [Concomitant]
  5. COZAAR [Concomitant]
  6. PROZAC [Concomitant]
  7. ACIPHEX [Concomitant]
  8. MACROBID [Concomitant]
  9. URISTAT [Concomitant]
  10. SINGULAIR ^DIECKMANN^ [Concomitant]
  11. NITRGLYCERIN TRANSDERMAL SYSTEM [Concomitant]
  12. EXCEDRIN (MIGRAINE) [Concomitant]
  13. ASPIRIN [Concomitant]

REACTIONS (2)
  - HEADACHE [None]
  - MIGRAINE [None]
